FAERS Safety Report 9260454 (Version 1)
Quarter: 2013Q2

REPORT INFORMATION
  Report Type: Spontaneous
  Country: KR (occurrence: KR)
  Receive Date: 20130429
  Receipt Date: 20130429
  Transmission Date: 20140414
  Serious: Yes (Death)
  Sender: FDA-Public Use
  Company Number: KR-EISAI INC-E7389-03788-SPO-KR

PATIENT
  Age: 57 Year
  Sex: Female

DRUGS (3)
  1. HALAVEN [Suspect]
     Indication: BREAST CANCER
     Route: 041
     Dates: start: 20130408
  2. HALAVEN [Suspect]
     Indication: METASTASES TO LIVER
  3. HALAVEN [Suspect]
     Indication: METASTASES TO LUNG

REACTIONS (3)
  - Multi-organ failure [Fatal]
  - Mucosal haemorrhage [Fatal]
  - Pancytopenia [Fatal]
